FAERS Safety Report 7048062-X (Version None)
Quarter: 2010Q4

REPORT INFORMATION
  Report Type: 
  Country: None (occurrence: None)
  Receive Date: 20101015
  Receipt Date: 20101008
  Transmission Date: 20110411
  Serious: Yes (Hospitalization)
  Sender: FDA-Public Use
  Company Number: B0677771A

PATIENT
  Sex: Female
  Weight: 44.8 kg

DRUGS (2)
  1. LAPATINIB [Suspect]
     Dosage: 1250MG PER DAY
     Route: 048
     Dates: start: 20100812
  2. DOCETAXEL [Suspect]
     Dosage: 110MG EVERY 3 WEEKS
     Route: 042
     Dates: start: 20100812

REACTIONS (4)
  - FATIGUE [None]
  - MALAISE [None]
  - POLLAKIURIA [None]
  - URINARY TRACT INFECTION [None]
